FAERS Safety Report 15924735 (Version 5)
Quarter: 2019Q2

REPORT INFORMATION
  Report Type: Report from Study
  Country: US (occurrence: US)
  Receive Date: 20190206
  Receipt Date: 20190415
  Transmission Date: 20190711
  Serious: Yes (Hospitalization, Other)
  Sender: FDA-Public Use
  Company Number: US-BIOGEN-2019BI00690646

PATIENT
  Age: 47 Year
  Sex: Female

DRUGS (3)
  1. TECFIDERA [Suspect]
     Active Substance: DIMETHYL FUMARATE
     Indication: MULTIPLE SCLEROSIS
     Dosage: STARTING DOSE
     Route: 050
     Dates: start: 201707, end: 201707
  2. TECFIDERA [Suspect]
     Active Substance: DIMETHYL FUMARATE
     Dosage: MAINTENANCE DOSE
     Route: 050
     Dates: start: 201707
  3. DEPO-PROVERA [Suspect]
     Active Substance: MEDROXYPROGESTERONE ACETATE
     Indication: PRODUCT USED FOR UNKNOWN INDICATION
     Route: 050

REACTIONS (8)
  - Pulmonary thrombosis [Recovered/Resolved]
  - Fatigue [Unknown]
  - Multiple sclerosis [Not Recovered/Not Resolved]
  - Vitamin D decreased [Not Recovered/Not Resolved]
  - Deep vein thrombosis [Recovered/Resolved]
  - Rectal haemorrhage [Unknown]
  - Hypersomnia [Not Recovered/Not Resolved]
  - Vitamin B12 decreased [Not Recovered/Not Resolved]

NARRATIVE: CASE EVENT DATE: 2017
